FAERS Safety Report 6074130-5 (Version None)
Quarter: 2009Q1

REPORT INFORMATION
  Report Type: 
  Country: None (occurrence: None)
  Receive Date: 20090211
  Receipt Date: 20090210
  Transmission Date: 20090719
  Serious: Yes (Hospitalization)
  Sender: FDA-Public Use
  Company Number: B0558365A

PATIENT
  Age: 7 Week
  Sex: Male
  Weight: 2 kg

DRUGS (1)
  1. RANIPLEX [Suspect]
     Dosage: 10MGKD TWICE PER DAY
     Route: 048
     Dates: start: 20080101, end: 20081230

REACTIONS (4)
  - DRUG INEFFECTIVE [None]
  - GASTROOESOPHAGEAL REFLUX DISEASE [None]
  - NECROTISING COLITIS [None]
  - REGURGITATION [None]
